FAERS Safety Report 13823064 (Version 8)
Quarter: 2020Q1

REPORT INFORMATION
  Report Type: Report from Study
  Country: US (occurrence: US)
  Receive Date: 20170801
  Receipt Date: 20200319
  Transmission Date: 20200409
  Serious: Yes (Hospitalization, Other)
  Sender: FDA-Public Use
  Company Number: US-ARIAD PHARMACEUTICALS, INC-2017US008604

PATIENT
  Age: 49 Year
  Sex: Female
  Weight: 94 kg

DRUGS (11)
  1. TAMIFLU [Concomitant]
     Active Substance: OSELTAMIVIR PHOSPHATE
     Dosage: UNK
     Route: 065
  2. ZEGERID                            /00661201/ [Concomitant]
     Active Substance: OMEPRAZOLE
  3. PLECANATIDE [Concomitant]
     Active Substance: PLECANATIDE
  4. PROMETHAZINE HCL [Concomitant]
     Active Substance: PROMETHAZINE HYDROCHLORIDE
  5. PONATINIB [Suspect]
     Active Substance: PONATINIB
     Dosage: 45 MILLIGRAM, QD
     Route: 048
  6. CARAFATE [Concomitant]
     Active Substance: SUCRALFATE
  7. ELAVIL [Concomitant]
     Active Substance: AMITRIPTYLINE HYDROCHLORIDE
  8. MISOPROSTOL. [Concomitant]
     Active Substance: MISOPROSTOL
  9. STOOL SOFTENER (DOCUSATE) [Concomitant]
     Active Substance: DOCUSATE
  10. PONATINIB [Suspect]
     Active Substance: PONATINIB
     Indication: CHRONIC MYELOID LEUKAEMIA
     Dosage: 45 MILLIGRAM, QD
     Route: 048
     Dates: start: 20170523
  11. PONATINIB [Suspect]
     Active Substance: PONATINIB
     Dosage: UNK
     Route: 048
     Dates: start: 20170717

REACTIONS (21)
  - Diarrhoea [Unknown]
  - Night sweats [Unknown]
  - Constipation [Unknown]
  - Skin exfoliation [Unknown]
  - Pain [Unknown]
  - Gastric disorder [Unknown]
  - Hypoaesthesia [Unknown]
  - Chest pain [Unknown]
  - Blood pressure increased [Unknown]
  - Muscle spasms [Unknown]
  - Arthralgia [Unknown]
  - Malaise [Unknown]
  - Blood count abnormal [Recovering/Resolving]
  - Ulcer [Unknown]
  - Headache [Unknown]
  - Nausea [Unknown]
  - Product dose omission [Unknown]
  - Pancytopenia [Unknown]
  - Gastrooesophageal reflux disease [Unknown]
  - Fatigue [Unknown]
  - Drug ineffective [Unknown]

NARRATIVE: CASE EVENT DATE: 20180921
